FAERS Safety Report 9390718 (Version 2)
Quarter: 2013Q3

REPORT INFORMATION
  Report Type: Spontaneous
  Country: FR (occurrence: FR)
  Receive Date: 20130709
  Receipt Date: 20130903
  Transmission Date: 20140515
  Serious: Yes (Hospitalization)
  Sender: FDA-Public Use
  Company Number: FR-AMGEN-FRASP2013047403

PATIENT
  Age: 60 Year
  Sex: Female

DRUGS (13)
  1. VECTIBIX [Suspect]
     Indication: COLON CANCER
     Dosage: 310 MG, UNK
     Route: 065
     Dates: start: 20120225
  2. VECTIBIX [Suspect]
     Dosage: 395 MG, UNK (395 MG, 1 IN 1 CYCLE)
     Route: 042
     Dates: start: 20130514
  3. VECTIBIX [Suspect]
     Dosage: 395 MG, ONE TIME DOSE (395 MG, 1 IN 1 CYCLE)
     Route: 042
     Dates: start: 20130528, end: 20130528
  4. ZOPHREN [Suspect]
     Indication: PREMEDICATION
     Dosage: 8 MG CYCLICAL
     Route: 042
     Dates: start: 20130528, end: 20130528
  5. OXALIPLATIN [Suspect]
     Indication: COLON CANCER
     Dosage: 130 MG, UNK
     Route: 042
     Dates: start: 20130514
  6. OXALIPLATIN [Suspect]
     Dosage: 130 MG, ONE TIME DOSE, 1 IN 1 CYCLE (5MG/ML)
     Route: 042
     Dates: start: 20130528, end: 20130528
  7. CALCIUM FOLINATE [Concomitant]
     Indication: COLON CANCER
     Dosage: 660 MG, UNK
     Route: 042
     Dates: start: 20130514
  8. CALCIUM FOLINATE [Concomitant]
     Dosage: 660 MG, ONE TIME DOSE, 1 IN1 CYCLE
     Route: 042
     Dates: start: 20130528, end: 20130528
  9. 5 FU [Concomitant]
     Indication: COLON CANCER
     Dosage: 660 MG, UNK
     Route: 040
     Dates: start: 20130514
  10. 5 FU [Concomitant]
     Dosage: 1980 MG, UNK
     Dates: start: 20130514
  11. CAMPTO [Concomitant]
     Indication: COLON CANCER
     Dosage: 210 MG, EVERY 15 DAYS
     Dates: start: 20120225
  12. XELODA [Concomitant]
     Indication: COLON CANCER
     Dosage: UNK
     Dates: start: 201305
  13. SOLUMEDROL [Concomitant]
     Indication: PREMEDICATION
     Dosage: 80 MG, ONE TIME DOSE, 1 IN1 CYCLE, (40 MG/2ML)
     Route: 042
     Dates: start: 20130528, end: 20130528

REACTIONS (6)
  - Respiratory distress [Recovered/Resolved]
  - Urticaria [Recovered/Resolved]
  - Bronchospasm [Recovered/Resolved]
  - Hypersensitivity [Recovered/Resolved]
  - Erythema [Recovered/Resolved]
  - Pruritus [Recovered/Resolved]
